FAERS Safety Report 6329958-0 (Version None)
Quarter: 2009Q3

REPORT INFORMATION
  Report Type: 
  Country: None (occurrence: None)
  Receive Date: 20090826
  Receipt Date: 20090811
  Transmission Date: 20100115
  Serious: Yes (Death, Other)
  Sender: FDA-Public Use
  Company Number: EG-GENENTECH-289217

PATIENT
  Age: 22 Year
  Sex: Female
  Weight: 100 kg

DRUGS (7)
  1. XOLAIR [Suspect]
     Indication: ASTHMA
     Dosage: 300 IU, 1/MONTH
     Route: 058
     Dates: start: 20090729, end: 20090731
  2. BUDESONIDE [Concomitant]
     Indication: DRUG USE FOR UNKNOWN INDICATION
  3. FORADIL [Concomitant]
     Indication: DRUG USE FOR UNKNOWN INDICATION
  4. SPIRIVA [Concomitant]
     Indication: DRUG USE FOR UNKNOWN INDICATION
  5. SINGULAIR [Concomitant]
     Indication: DRUG USE FOR UNKNOWN INDICATION
  6. URBASON [Concomitant]
     Indication: DRUG USE FOR UNKNOWN INDICATION
  7. QUIBRON [Concomitant]
     Indication: DRUG USE FOR UNKNOWN INDICATION

REACTIONS (3)
  - ACUTE RESPIRATORY FAILURE [None]
  - CANDIDIASIS [None]
  - SEPSIS [None]
